FAERS Safety Report 15571567 (Version 4)
Quarter: 2019Q3

REPORT INFORMATION
  Report Type: Report from Study
  Country: GB (occurrence: GB)
  Receive Date: 20181031
  Receipt Date: 20190917
  Transmission Date: 20191004
  Serious: Yes (Congenital Anomaly, Other)
  Sender: FDA-Public Use
  Company Number: GB-MYLANLABS-2018M1081071

PATIENT

DRUGS (4)
  1. ABACAVIR SULFATE/LAMIVUDINE [Suspect]
     Active Substance: ABACAVIR SULFATE\LAMIVUDINE
     Indication: ANTIVIRAL TREATMENT
     Dosage: 1 DF, QD,1 DOSAGE FORMS DAILY;
     Route: 064
     Dates: start: 20170601
  2. EDURANT [Suspect]
     Active Substance: RILPIVIRINE HYDROCHLORIDE
     Dosage: 25 MILLIGRAM, QD
     Route: 064
     Dates: start: 20171214
  3. ABACAVIR SULFATE/LAMIVUDINE [Suspect]
     Active Substance: ABACAVIR SULFATE\LAMIVUDINE
     Indication: HIV INFECTION
     Dosage: UNK
     Route: 064
     Dates: start: 20171214
  4. EDURANT [Suspect]
     Active Substance: RILPIVIRINE HYDROCHLORIDE
     Indication: HIV INFECTION
     Dosage: 25 MG, QD,25 MILLIGRAM DAILY;
     Route: 064
     Dates: start: 20170601

REACTIONS (2)
  - Foetal exposure during pregnancy [Recovered/Resolved]
  - Congenital pyelocaliectasis [Unknown]

NARRATIVE: CASE EVENT DATE: 201706
